FAERS Safety Report 7797144-3 (Version None)
Quarter: 2011Q4

REPORT INFORMATION
  Report Type: 
  Country: None (occurrence: None)
  Receive Date: 20111005
  Receipt Date: 20110923
  Transmission Date: 20120403
  Serious: Yes (Hospitalization)
  Sender: FDA-Public Use
  Company Number: FR-SANOFI-AVENTIS-2011SA062278

PATIENT
  Age: 86 Year
  Sex: Male

DRUGS (12)
  1. MODOPAR [Concomitant]
  2. AMOXICILLIN AND CLAVULANATE POTASSIUM [Suspect]
     Route: 048
     Dates: start: 20110907, end: 20110907
  3. LACTULOSE [Concomitant]
  4. LOVENOX [Suspect]
     Route: 058
     Dates: start: 20110907, end: 20110907
  5. GENTAMICIN [Suspect]
     Route: 042
     Dates: start: 20110907, end: 20110907
  6. KAYEXALATE [Suspect]
     Route: 048
     Dates: start: 20110907, end: 20110907
  7. PERMIXON [Concomitant]
  8. STABLON [Concomitant]
     Route: 048
  9. ACETYLCYSTEINE [Concomitant]
     Route: 048
  10. VANCOMYCIN [Suspect]
     Route: 042
     Dates: start: 20110907, end: 20110907
  11. LORAZEPAM [Concomitant]
  12. BUSPIRONE [Concomitant]

REACTIONS (3)
  - HYPOTENSION [None]
  - VOMITING [None]
  - DERMATITIS EXFOLIATIVE [None]
